FAERS Safety Report 22323101 (Version 1)
Quarter: 2023Q2

REPORT INFORMATION
  Report Type: Report from Study
  Country: US (occurrence: US)
  Receive Date: 20230516
  Receipt Date: 20230516
  Transmission Date: 20230721
  Serious: Yes (Other)
  Sender: FDA-Public Use
  Company Number: US-AUROBINDO-AUR-APL-2023-035794

PATIENT
  Age: 16 Year
  Sex: Male

DRUGS (4)
  1. AMPHOTERICIN B [Suspect]
     Active Substance: AMPHOTERICIN B
     Indication: Systemic candida
     Dosage: UNK
     Route: 065
  2. SARGRAMOSTIM [Concomitant]
     Active Substance: SARGRAMOSTIM
     Indication: Acute myeloid leukaemia
     Dosage: 250 MICROGRAM/SQ. METER, ONCE A DAY
     Route: 065
  3. SARGRAMOSTIM [Concomitant]
     Active Substance: SARGRAMOSTIM
     Dosage: 100 MICROGRAM/SQ. METER (THRICE IN A WEEK)
     Route: 065
  4. MICAFUNGIN [Concomitant]
     Active Substance: MICAFUNGIN SODIUM
     Indication: Systemic candida
     Dosage: UNK
     Route: 065

REACTIONS (1)
  - Infusion related reaction [Unknown]
